FAERS Safety Report 4796443-7 (Version None)
Quarter: 2005Q3

REPORT INFORMATION
  Report Type: 
  Country: None (occurrence: None)
  Receive Date: 20050916
  Receipt Date: 20041217
  Transmission Date: 20060218
  Serious: Yes (Other)
  Sender: FDA-Public Use
  Company Number: US-JNJFOC-20040902122

PATIENT
  Age: 32 Year
  Sex: Female
  Weight: 109.3169 kg

DRUGS (7)
  1. TOPAMAX [Suspect]
     Indication: MIGRAINE
     Dosage: 200 MG, ORAL
     Route: 048
     Dates: start: 20000101
  2. CELEXA [Concomitant]
  3. ELAVIL [Concomitant]
  4. LORCET-HD [Concomitant]
  5. LASIX [Concomitant]
  6. KEPPRA [Concomitant]
  7. DURAGESIC-100 [Concomitant]

REACTIONS (2)
  - NEPHROLITHIASIS [None]
  - WEIGHT INCREASED [None]
